FAERS Safety Report 4385429-2 (Version None)
Quarter: 2004Q2

REPORT INFORMATION
  Report Type: 
  Country: None (occurrence: None)
  Receive Date: 20040622
  Receipt Date: 20040610
  Transmission Date: 20050107
  Serious: Yes (Hospitalization)
  Sender: FDA-Public Use
  Company Number: 180212

PATIENT
  Age: 55 Year
  Sex: Female
  Weight: 72.5755 kg

DRUGS (5)
  1. AVONEX [Suspect]
     Indication: MULTIPLE SCLEROSIS
     Dosage: 30 MCG QW IM
     Route: 030
     Dates: start: 20000101, end: 20030101
  2. AVONEX [Suspect]
     Indication: MULTIPLE SCLEROSIS
     Dosage: 30 MCG QW IM
     Route: 030
     Dates: start: 20030101
  3. HORMONE REPLACEMENT (NOS) [Concomitant]
  4. INHALER (NOS) [Concomitant]
  5. ZOCOR [Concomitant]

REACTIONS (5)
  - FATIGUE [None]
  - MUSCULAR WEAKNESS [None]
  - MYALGIA [None]
  - PULMONARY EMBOLISM [None]
  - PYREXIA [None]
